FAERS Safety Report 7307180-9 (Version None)
Quarter: 2011Q1

REPORT INFORMATION
  Report Type: 
  Country: None (occurrence: None)
  Receive Date: 20110120
  Receipt Date: 20101011
  Transmission Date: 20110831
  Serious: Yes (Other)
  Sender: FDA-Public Use
  Company Number: 2010SP054676

PATIENT
  Age: 15 Year
  Sex: Female

DRUGS (1)
  1. DULERA TABLET [Suspect]
     Indication: ASTHMA
     Dosage: INH
     Route: 055
     Dates: end: 20100901

REACTIONS (2)
  - TREMOR [None]
  - FEELING JITTERY [None]
